FAERS Safety Report 9280297 (Version 2)
Quarter: 2013Q2

REPORT INFORMATION
  Report Type: Spontaneous
  Country: GB (occurrence: None)
  Receive Date: 20130507
  Receipt Date: 20130620
  Transmission Date: 20140414
  Serious: Yes (Death)
  Sender: FDA-Public Use
  Company Number: AMAG201300070

PATIENT
  Age: 67 Year
  Sex: Male

DRUGS (9)
  1. RIENSO [Suspect]
     Indication: IRON DEFICIENCY ANAEMIA
     Dosage: SINGLE
     Route: 042
     Dates: start: 20130415, end: 20130415
  2. ATACAND [Concomitant]
  3. TORASEMIDE [Concomitant]
  4. METOPROLOL TARTRATE AND HYDROCHLOROTHIAZIDE [Concomitant]
  5. CRESTOR [Concomitant]
  6. AMLODIPINE [Concomitant]
  7. ASPIRIN (ACETYLSALICYLIC ACID) [Concomitant]
  8. INSULIN HUMAN INJECTION, ISOPHANE [Concomitant]
  9. INSULIN ASPART (INSULIN ASPART) [Concomitant]

REACTIONS (3)
  - Anaphylactic shock [None]
  - Type I hypersensitivity [None]
  - Cardiac arrest [None]
